FAERS Safety Report 5950419-2 (Version None)
Quarter: 2008Q4

REPORT INFORMATION
  Report Type: 
  Country: None (occurrence: None)
  Receive Date: 20081112
  Receipt Date: 20081106
  Transmission Date: 20090506
  Serious: Yes (Other)
  Sender: FDA-Public Use
  Company Number: US-MERCK-0811USA00928

PATIENT
  Sex: Female

DRUGS (4)
  1. FOSAMAX [Suspect]
     Route: 048
     Dates: start: 19980101
  2. CALCIUM (UNSPECIFIED) AND VITAMIN D (UNSPECIFIED) [Concomitant]
     Route: 065
  3. BONIVA [Concomitant]
     Route: 065
     Dates: end: 20080601
  4. ACTONEL [Concomitant]
     Route: 065
     Dates: end: 20080601

REACTIONS (2)
  - OSTEONECROSIS [None]
  - TOOTH DISORDER [None]
